FAERS Safety Report 18438743 (Version 1)
Quarter: 2020Q4

REPORT INFORMATION
  Report Type: Report from Study
  Country: US (occurrence: US)
  Receive Date: 20201028
  Receipt Date: 20201028
  Transmission Date: 20210114
  Serious: Yes (Hospitalization)
  Sender: FDA-Public Use
  Company Number: US-TAIHO ONCOLOGY  INC-EU-2020-03375

PATIENT
  Age: 73 Year
  Sex: Female

DRUGS (16)
  1. BENZONATATE. [Concomitant]
     Active Substance: BENZONATATE
     Indication: COUGH
     Dosage: TAKE 1-2 CAPSULES EVERY 6-8 HOURS AS NEEDED
     Route: 048
     Dates: start: 20200917
  2. CYANOCOBALAMIN. [Concomitant]
     Active Substance: CYANOCOBALAMIN
     Dosage: DOSE: 1000 MCG/ML
     Route: 030
  3. DOCUSATE SODIUM. [Concomitant]
     Active Substance: DOCUSATE SODIUM
     Route: 048
     Dates: start: 20200228
  4. TRAZODONE HYDROCHLORIDE. [Concomitant]
     Active Substance: TRAZODONE HYDROCHLORIDE
     Dosage: AT BED TIME
     Route: 048
     Dates: start: 20200320
  5. LONSURF [Suspect]
     Active Substance: TIPIRACIL HYDROCHLORIDE\TRIFLURIDINE
     Indication: COLON CANCER METASTATIC
     Dosage: CYCLE 1
     Route: 048
     Dates: start: 20190603
  6. GABAPENTIN. [Concomitant]
     Active Substance: GABAPENTIN
     Indication: RESTLESS LEGS SYNDROME
     Dosage: 1-2 ORALLY EVERY 2 HOURS AS NEEDED RESTLESS LEGS UP TO 8 CAPSULES A DAY
     Route: 048
     Dates: start: 20200728
  7. OXYGEN. [Concomitant]
     Active Substance: OXYGEN
     Dosage: 2L PER NC AT BEDTIME
  8. MIRALAX [Concomitant]
     Active Substance: POLYETHYLENE GLYCOL 3350
     Indication: CONSTIPATION
     Dosage: 17 GM/SCOOP, MIX 1 CAPFUL (17GM) IN 8 OUNCES OF WATER, JUICE, OR TEA AND DRINK DAILY AS NEEDED
     Route: 048
     Dates: start: 20200228
  9. OXYCODONE HYDROCHLORIDE. [Concomitant]
     Active Substance: OXYCODONE HYDROCHLORIDE
     Indication: PAIN
     Dosage: 1-2 TABLETS EVERY 2-4 HOURS AS NEEDED FOR PAIN
     Route: 048
     Dates: start: 20190930
  10. POTASSIUM CHLORIDE. [Concomitant]
     Active Substance: POTASSIUM CHLORIDE
     Route: 048
     Dates: start: 20191029
  11. LONSURF [Suspect]
     Active Substance: TIPIRACIL HYDROCHLORIDE\TRIFLURIDINE
     Dosage: CYCLE UNKNOWN
     Route: 048
     Dates: start: 202007, end: 20200910
  12. CVS VITAMIN D3 [Concomitant]
     Route: 048
  13. FENTANYL. [Concomitant]
     Active Substance: FENTANYL
     Dosage: 25 MCG/HR PATCH 72 HOURS
     Route: 062
     Dates: start: 20190129
  14. ONDANSETRON [Concomitant]
     Active Substance: ONDANSETRON
     Route: 048
     Dates: start: 20171201
  15. CALCIUM [Concomitant]
     Active Substance: CALCIUM
     Route: 048
     Dates: start: 20200630
  16. IMODIUM A-D [Concomitant]
     Active Substance: LOPERAMIDE HYDROCHLORIDE
     Indication: DIARRHOEA
     Dosage: TAKE 2 TABLETS INITIALLY, FOLLOWED BY 1 TABLET AFTER EACH LOOSE BOWEL MOVEMENT DO NOT EXCEED 8 TABLE
     Route: 048
     Dates: start: 20171201

REACTIONS (22)
  - Blood alkaline phosphatase increased [Unknown]
  - Haematuria [Unknown]
  - Pain in extremity [Recovering/Resolving]
  - Back pain [Unknown]
  - Asthenia [Unknown]
  - Colitis [Unknown]
  - Haemoglobin decreased [Recovering/Resolving]
  - Gastrointestinal haemorrhage [Recovering/Resolving]
  - Disease progression [Unknown]
  - Musculoskeletal pain [Recovering/Resolving]
  - Hypersomnia [Unknown]
  - Cough [Unknown]
  - Neutropenia [Unknown]
  - Haemorrhage [Unknown]
  - Decreased appetite [Unknown]
  - Nausea [Recovering/Resolving]
  - Abdominal pain [Unknown]
  - Diverticulum [Unknown]
  - Urinary tract infection [Unknown]
  - Weight decreased [Recovering/Resolving]
  - Fatigue [Unknown]
  - Sepsis [Unknown]

NARRATIVE: CASE EVENT DATE: 20190617
